FAERS Safety Report 5704434-4 (Version None)
Quarter: 2008Q2

REPORT INFORMATION
  Report Type: 
  Country: None (occurrence: None)
  Receive Date: 20080414
  Receipt Date: 20080404
  Transmission Date: 20081010
  Serious: Yes (Hospitalization)
  Sender: FDA-Public Use
  Company Number: B0515885A

PATIENT
  Age: 52 Year
  Sex: Female

DRUGS (5)
  1. EPIVIR [Suspect]
     Indication: HIV INFECTION
     Route: 048
     Dates: start: 20030101, end: 20070601
  2. KALETRA [Suspect]
     Indication: HIV INFECTION
     Route: 048
     Dates: start: 20060401, end: 20070601
  3. VIDEX [Suspect]
     Indication: HIV INFECTION
     Route: 048
     Dates: start: 20030101, end: 20070601
  4. VIRAMUNE [Suspect]
     Indication: HIV INFECTION
     Route: 048
     Dates: start: 20030101, end: 20060301
  5. PENTAMIDINE ISETHIONATE [Concomitant]
     Indication: PROPHYLAXIS
     Route: 065

REACTIONS (8)
  - ABDOMINAL DISTENSION [None]
  - ASCITES [None]
  - DYSPNOEA [None]
  - HEPATIC FIBROSIS [None]
  - HYPERALDOSTERONISM [None]
  - PLEURAL EFFUSION [None]
  - PORTAL HYPERTENSION [None]
  - VARICES OESOPHAGEAL [None]
